FAERS Safety Report 5744617-0 (Version None)
Quarter: 2008Q2

REPORT INFORMATION
  Report Type: 
  Country: None (occurrence: None)
  Receive Date: 20080520
  Receipt Date: 20080331
  Transmission Date: 20081010
  Serious: No
  Sender: FDA-Public Use
  Company Number: US-ABBOTT-08P-163-0444632-00

PATIENT
  Sex: Male
  Weight: 83.99 kg

DRUGS (4)
  1. AZMACORT [Suspect]
     Indication: ASTHMA
     Dosage: 3 PUFFS IN AM AND 3 PUFFS AT NIGHT
     Route: 055
     Dates: start: 20000101
  2. LORATADINE [Concomitant]
     Indication: DRUG USE FOR UNKNOWN INDICATION
  3. MONTELUKAST SODIUM [Concomitant]
     Indication: DRUG USE FOR UNKNOWN INDICATION
  4. BECLOMETHASONE DIPROPIONATE [Concomitant]
     Indication: DRUG USE FOR UNKNOWN INDICATION

REACTIONS (1)
  - DRUG INEFFECTIVE [None]
